FAERS Safety Report 6492677-4 (Version None)
Quarter: 2009Q4

REPORT INFORMATION
  Report Type: 
  Country: None (occurrence: None)
  Receive Date: 20091214
  Receipt Date: 20091202
  Transmission Date: 20100525
  Serious: Yes (Other)
  Sender: FDA-Public Use
  Company Number: US-PFIZER INC-2009305984

PATIENT
  Sex: Female
  Weight: 77.098 kg

DRUGS (7)
  1. ALDACTONE [Suspect]
     Indication: HYPERTENSION
  2. LOMOTIL [Suspect]
     Indication: DIARRHOEA
  3. ENALAPRIL MALEATE [Concomitant]
     Indication: HYPERTENSION
     Dosage: UNK
  4. SPIRIVA [Concomitant]
     Indication: ASTHMA
     Dates: start: 20080101
  5. ACETYLSALICYLIC ACID [Concomitant]
     Dosage: UNK
  6. CALCIUM WITH VITAMIN D [Concomitant]
     Dosage: 600 MG, 2X/DAY
  7. PRAVASTATIN [Concomitant]
     Dosage: UNK

REACTIONS (9)
  - ASTHMA [None]
  - BLOOD MAGNESIUM DECREASED [None]
  - BLOOD POTASSIUM DECREASED [None]
  - COELIAC DISEASE [None]
  - HOT FLUSH [None]
  - HYPERTENSION [None]
  - NASAL CONGESTION [None]
  - URINARY TRACT INFECTION [None]
  - VITAMIN D DEFICIENCY [None]
